FAERS Safety Report 9271477 (Version 2)
Quarter: 2013Q2

REPORT INFORMATION
  Report Type: Spontaneous
  Country: US (occurrence: US)
  Receive Date: 20130506
  Receipt Date: 20130521
  Transmission Date: 20140414
  Serious: Yes (Hospitalization, Other)
  Sender: FDA-Public Use
  Company Number: US-PFIZER INC-2013136412

PATIENT
  Age: 60 Year
  Sex: Male

DRUGS (5)
  1. TIKOSYN [Suspect]
     Dosage: 250, UNK
     Dates: start: 201301
  2. QUINAPRIL [Concomitant]
     Dosage: UNK
  3. ATORVASTATIN [Concomitant]
     Dosage: UNK
  4. SYNTHROID [Concomitant]
     Dosage: 100 UG, 1X/DAY
  5. MULTIVITAMINS [Concomitant]
     Dosage: UNK

REACTIONS (6)
  - Ventricular tachycardia [Unknown]
  - Ventricular extrasystoles [Unknown]
  - Drug ineffective [Unknown]
  - Heart sounds abnormal [Unknown]
  - Electrocardiogram T wave abnormal [Unknown]
  - Dizziness [Unknown]
